FAERS Safety Report 23730331 (Version 2)
Quarter: 2024Q2

REPORT INFORMATION
  Report Type: Spontaneous
  Country: CA (occurrence: CA)
  Receive Date: 20240411
  Receipt Date: 20240610
  Transmission Date: 20240716
  Serious: Yes (Hospitalization, Other)
  Sender: FDA-Public Use
  Company Number: CA-SANOFI-02006176

PATIENT
  Age: 83 Year
  Sex: Female

DRUGS (9)
  1. DUPIXENT [Suspect]
     Active Substance: DUPILUMAB
     Dosage: 300 MG, QOW
     Route: 058
     Dates: start: 202401, end: 2024
  2. EURO K 600 [Concomitant]
  3. TRIAZIDE [TRICHLORMETHIAZIDE] [Concomitant]
  4. LIPITOR [Concomitant]
     Active Substance: ATORVASTATIN CALCIUM
  5. DONEPEZIL [Concomitant]
     Active Substance: DONEPEZIL\DONEPEZIL HYDROCHLORIDE
  6. CANDESARTAN [Concomitant]
     Active Substance: CANDESARTAN
  7. OMNARIS [Concomitant]
     Active Substance: CICLESONIDE
  8. DICLOFENAC [Concomitant]
     Active Substance: DICLOFENAC
  9. INCRUSE ELLIPTA [Concomitant]
     Active Substance: UMECLIDINIUM BROMIDE

REACTIONS (6)
  - Cholecystitis [Unknown]
  - Chronic myelomonocytic leukaemia [Unknown]
  - Thrombocytopenia [Recovering/Resolving]
  - Platelet count decreased [Recovering/Resolving]
  - Neutrophil count increased [Unknown]
  - Abdominal pain upper [Unknown]

NARRATIVE: CASE EVENT DATE: 20240301
